FAERS Safety Report 10021333 (Version 2)
Quarter: 2014Q2

REPORT INFORMATION
  Report Type: Spontaneous
  Country: JP (occurrence: JP)
  Receive Date: 20140319
  Receipt Date: 20140407
  Transmission Date: 20141212
  Serious: Yes (Other)
  Sender: FDA-Public Use
  Company Number: JP-ABBVIE-14P-087-1214110-00

PATIENT
  Age: 36 Year
  Sex: Female

DRUGS (3)
  1. KLARICID TABLETS 200MG [Suspect]
     Indication: BRONCHITIS
     Route: 048
     Dates: start: 20140303, end: 20140305
  2. TAMIFLU [Suspect]
     Indication: INFLUENZA
     Route: 048
     Dates: start: 20140303, end: 20140306
  3. BROMHEXINE HYDROCHLORIDE [Concomitant]
     Indication: BRONCHITIS
     Route: 048
     Dates: start: 20140303, end: 20140305

REACTIONS (9)
  - Incoherent [Recovered/Resolved]
  - Abnormal behaviour [Recovered/Resolved]
  - Hallucination [Recovered/Resolved]
  - Depressed level of consciousness [Recovered/Resolved]
  - Hypoaesthesia [Recovered/Resolved]
  - Pruritus generalised [Recovered/Resolved]
  - Musculoskeletal stiffness [Recovered/Resolved]
  - Lacrimation increased [Recovered/Resolved]
  - Diarrhoea [Unknown]
